FAERS Safety Report 4389263-9 (Version None)
Quarter: 2004Q2

REPORT INFORMATION
  Report Type: 
  Country: None (occurrence: None)
  Receive Date: 20040628
  Receipt Date: 20040614
  Transmission Date: 20050107
  Serious: Yes (Disabling)
  Sender: FDA-Public Use
  Company Number: 04P-167-0263852-00

PATIENT
  Age: 75 Year
  Sex: Female
  Weight: 54.5 kg

DRUGS (4)
  1. ISOPTIN [Suspect]
     Indication: ATRIAL FIBRILLATION
     Dosage: 40 MG, 3 IN 1 D, PER ORAL
     Route: 048
     Dates: start: 20040426, end: 20040511
  2. WARFARIN SODIUM [Concomitant]
  3. DIGOXIN [Concomitant]
  4. LATANOPROST [Concomitant]

REACTIONS (1)
  - PHOTOPSIA [None]
